FAERS Safety Report 5305621-X (Version None)
Quarter: 2007Q1

REPORT INFORMATION
  Report Type: 
  Country: None (occurrence: None)
  Receive Date: 20070201
  Receipt Date: 20061229
  Transmission Date: 20070707
  Serious: No
  Sender: FDA-Public Use
  Company Number: 2006PV027532

PATIENT
  Age: 63 Year
  Sex: Female
  Weight: 98.4306 kg

DRUGS (11)
  1. BYETTA [Suspect]
     Indication: DIABETES MELLITUS NON-INSULIN-DEPENDENT
     Dosage: SEE IMAGE
     Route: 058
     Dates: start: 20060701, end: 20061215
  2. BYETTA [Suspect]
     Indication: DIABETES MELLITUS NON-INSULIN-DEPENDENT
     Dosage: SEE IMAGE
     Route: 058
     Dates: start: 20061216, end: 20061225
  3. BYETTA [Suspect]
     Indication: DIABETES MELLITUS NON-INSULIN-DEPENDENT
     Dosage: SEE IMAGE
     Route: 058
     Dates: start: 20061226
  4. GLUCHOPHAGE [Concomitant]
  5. TOPROL-XL [Concomitant]
  6. ACEON [Concomitant]
  7. TRICOR [Concomitant]
  8. PRAVACHOL [Concomitant]
  9. ASPIRIN [Concomitant]
  10. ASCORBIC ACID [Concomitant]
  11. LUTEIN EYE CARE COMPLEX [Concomitant]

REACTIONS (10)
  - EYE SWELLING [None]
  - FACIAL PAIN [None]
  - HERPES ZOSTER [None]
  - LYMPHADENOPATHY [None]
  - NASOPHARYNGITIS [None]
  - NAUSEA [None]
  - PRURITUS [None]
  - SKIN INFECTION [None]
  - SWELLING FACE [None]
  - WEIGHT DECREASED [None]
